FAERS Safety Report 7657139-7 (Version None)
Quarter: 2011Q3

REPORT INFORMATION
  Report Type: 
  Country: None (occurrence: None)
  Receive Date: 20110804
  Receipt Date: 20110428
  Transmission Date: 20111222
  Serious: No
  Sender: FDA-Public Use
  Company Number: US-GLAXOSMITHKLINE-A0924939A

PATIENT
  Age: 6 Year
  Sex: Female

DRUGS (2)
  1. PROAIR HFA [Concomitant]
  2. ADVAIR DISKUS 100/50 [Suspect]
     Indication: ASTHMA
     Dosage: 2PUFF TWICE PER DAY
     Route: 055
     Dates: start: 20110126, end: 20110428

REACTIONS (8)
  - VISION BLURRED [None]
  - URTICARIA [None]
  - PSYCHOMOTOR HYPERACTIVITY [None]
  - DIPLOPIA [None]
  - EAR INFECTION [None]
  - PYREXIA [None]
  - DISTURBANCE IN ATTENTION [None]
  - WHEEZING [None]
